FAERS Safety Report 4529727-8 (Version None)
Quarter: 2004Q4

REPORT INFORMATION
  Report Type: 
  Country: None (occurrence: None)
  Receive Date: 20041215
  Receipt Date: 20041215
  Transmission Date: 20050328
  Serious: Yes (Other)
  Sender: FDA-Public Use
  Company Number: None

PATIENT
  Age: 51 Year
  Sex: Male

DRUGS (2)
  1. SEROQUEL [Suspect]
  2. LEVOFLOXACIN [Concomitant]

REACTIONS (5)
  - ABDOMINAL PAIN [None]
  - CONVULSION [None]
  - LACERATION [None]
  - LOSS OF CONSCIOUSNESS [None]
  - TONGUE DISORDER [None]
